FAERS Safety Report 4820959-8 (Version None)
Quarter: 2005Q4

REPORT INFORMATION
  Report Type: 
  Country: None (occurrence: None)
  Receive Date: 20051104
  Receipt Date: 20050810
  Transmission Date: 20060501
  Serious: Yes (Disabling)
  Sender: FDA-Public Use
  Company Number: MX-ROCHE-413574

PATIENT
  Age: 41 Year
  Sex: Female
  Weight: 44 kg

DRUGS (2)
  1. RIVOTRIL [Suspect]
     Indication: ANXIETY
     Dosage: FIVE DROPS AT NIGHT FOR THE FIRST DOSE.
     Route: 048
     Dates: start: 20050615
  2. RIVOTRIL [Suspect]
     Dosage: TWO DROPS WITH EVERY MEAL.
     Route: 048
     Dates: start: 20050615

REACTIONS (2)
  - ANXIETY [None]
  - PARALYSIS [None]
